FAERS Safety Report 5241021-9 (Version None)
Quarter: 2007Q1

REPORT INFORMATION
  Report Type: 
  Country: None (occurrence: None)
  Receive Date: 20070219
  Receipt Date: 20070209
  Transmission Date: 20070707
  Serious: Yes (Hospitalization, Other)
  Sender: FDA-Public Use
  Company Number: FR-ABBOTT-07P-056-0358922-00

PATIENT
  Sex: Female
  Weight: 55 kg

DRUGS (8)
  1. KALETRA [Suspect]
     Indication: HIV INFECTION
     Route: 048
     Dates: end: 20060907
  2. KALETRA [Suspect]
     Route: 048
     Dates: start: 20060907, end: 20061001
  3. FOSAMPRENAVIR [Concomitant]
     Indication: DRUG USE FOR UNKNOWN INDICATION
  4. RITONAVIR [Concomitant]
     Indication: DRUG USE FOR UNKNOWN INDICATION
  5. RITONAVIR [Concomitant]
     Dates: start: 20061201
  6. CYAMEMAZINE [Concomitant]
     Indication: DRUG USE FOR UNKNOWN INDICATION
  7. MIANSERIN [Concomitant]
     Indication: DRUG USE FOR UNKNOWN INDICATION
  8. TIPRANAVIR [Concomitant]
     Indication: DRUG USE FOR UNKNOWN INDICATION
     Dates: start: 20061001

REACTIONS (13)
  - BRADYCARDIA [None]
  - CHORIOMENINGITIS LYMPHOCYTIC [None]
  - COGNITIVE DISORDER [None]
  - DISORIENTATION [None]
  - ELECTROCARDIOGRAM REPOLARISATION ABNORMALITY [None]
  - ENCEPHALITIS VIRAL [None]
  - FEELING ABNORMAL [None]
  - LIVER DISORDER [None]
  - MAJOR DEPRESSION [None]
  - MEMORY IMPAIRMENT [None]
  - NEUROPATHY PERIPHERAL [None]
  - TRANSAMINASES INCREASED [None]
  - TREATMENT NONCOMPLIANCE [None]
